FAERS Safety Report 25615694 (Version 1)
Quarter: 2025Q3

REPORT INFORMATION
  Report Type: Report from Study
  Country: CA (occurrence: CA)
  Receive Date: 20250729
  Receipt Date: 20250729
  Transmission Date: 20251021
  Serious: Yes (Other)
  Sender: GILEAD
  Company Number: CA-GILEAD-2025-0722243

PATIENT
  Sex: Female

DRUGS (1)
  1. TENOFOVIR ALAFENAMIDE [Suspect]
     Active Substance: TENOFOVIR ALAFENAMIDE
     Indication: Hepatitis B
     Dosage: UNK, QD
     Route: 065
     Dates: start: 202312

REACTIONS (2)
  - Hepatic cirrhosis [Unknown]
  - Chronic gastritis [Unknown]
